FAERS Safety Report 9316486 (Version 3)
Quarter: 2013Q3

REPORT INFORMATION
  Report Type: Spontaneous
  Country: US (occurrence: US)
  Receive Date: 20130530
  Receipt Date: 20130823
  Transmission Date: 20140515
  Serious: No
  Sender: FDA-Public Use
  Company Number: US-ACCORD-017812

PATIENT
  Age: 48 Year
  Sex: Female
  Weight: 50.45 kg

DRUGS (11)
  1. MYCOPHENOLATE MOFETIL [Suspect]
     Indication: SYSTEMIC LUPUS ERYTHEMATOSUS
     Dosage: 500 MG ONE TAB AM AND 2 TAB HS
     Route: 048
     Dates: start: 200811
  2. CALCIUM [Concomitant]
     Indication: SUPPLEMENTATION THERAPY
     Dosage: 760 MG BID
     Route: 048
  3. PROBIOTIC [Concomitant]
     Indication: OVERGROWTH BACTERIAL
     Dosage: PROBIOTICS, 1 TABLET BID,
     Route: 048
  4. L-METHYLFOLATE [Concomitant]
     Indication: ANXIETY
     Dosage: 1/2 TAB BID
     Route: 048
  5. VITAMIN B-12 [Concomitant]
     Indication: SUPPLEMENTATION THERAPY
     Dosage: B-12
     Route: 048
  6. VITAMIN C [Concomitant]
     Indication: SUPPLEMENTATION THERAPY
     Route: 048
  7. VITAMIN D3 [Concomitant]
     Indication: SUPPLEMENTATION THERAPY
     Route: 048
  8. ENZYMES [Concomitant]
     Dosage: 1 TABLET WITH EACH MEAL (TID)
     Route: 048
  9. PRO-5 [Concomitant]
     Dosage: 1 TABLET DAILY
     Route: 048
  10. SPIRONOLACTONE [Concomitant]
     Indication: HYPERTENSION
     Dosage: 1.5 TABLETS DAILY
     Route: 048
  11. MAGNESIUM [Concomitant]
     Indication: SUPPLEMENTATION THERAPY
     Route: 048

REACTIONS (4)
  - Fibromyalgia [Unknown]
  - Abdominal discomfort [Unknown]
  - Antibody test positive [Unknown]
  - Off label use [Unknown]
